FAERS Safety Report 6216835-9 (Version None)
Quarter: 2009Q2

REPORT INFORMATION
  Report Type: 
  Country: None (occurrence: None)
  Receive Date: 20090603
  Receipt Date: 20090603
  Transmission Date: 20091009
  Serious: Yes (Disabling)
  Sender: FDA-Public Use
  Company Number: None

PATIENT
  Sex: Female
  Weight: 84.369 kg

DRUGS (4)
  1. NEVANAC [Suspect]
     Indication: POSTERIOR CAPSULE OPACIFICATION
     Dosage: 1 DROP EACH EYE 3 TIMES DAY EYES
     Dates: start: 20080619, end: 20081014
  2. NEVANAC [Suspect]
     Indication: RETINAL OEDEMA
     Dosage: 1 DROP EACH EYE 3 TIMES DAY EYES
     Dates: start: 20080619, end: 20081014
  3. NEVANAC [Suspect]
     Indication: POSTERIOR CAPSULE OPACIFICATION
     Dosage: 1 DROP EACH EYE 3 TIMES DAY EYES
     Dates: start: 20090429, end: 20090502
  4. NEVANAC [Suspect]
     Indication: RETINAL OEDEMA
     Dosage: 1 DROP EACH EYE 3 TIMES DAY EYES
     Dates: start: 20090429, end: 20090502

REACTIONS (8)
  - ASTHENOPIA [None]
  - EYE DISCHARGE [None]
  - EYE PRURITUS [None]
  - EYE SWELLING [None]
  - FACIAL PALSY [None]
  - PHOTOPHOBIA [None]
  - RETINAL OEDEMA [None]
  - VISION BLURRED [None]
